FAERS Safety Report 4731902-4 (Version None)
Quarter: 2005Q3

REPORT INFORMATION
  Report Type: 
  Country: None (occurrence: None)
  Receive Date: 20050802
  Receipt Date: 20050721
  Transmission Date: 20060218
  Serious: Yes (Death)
  Sender: FDA-Public Use
  Company Number: US-JNJFOC-20050704824

PATIENT
  Age: 77 Year
  Sex: Female

DRUGS (1)
  1. DURAGESIC-100 [Suspect]
     Dosage: 50 UG/HR, 1 IN 48-72 HOURS
     Route: 062

REACTIONS (3)
  - DRUG ADMINISTRATION ERROR [None]
  - HEAT EXPOSURE INJURY [None]
  - MEDICATION ERROR [None]
